FAERS Safety Report 22370154 (Version 2)
Quarter: 2024Q2

REPORT INFORMATION
  Report Type: Other
  Country: CN (occurrence: None)
  Receive Date: 20230526
  Receipt Date: 20240521
  Transmission Date: 20240716
  Serious: Yes (Other)
  Sender: FDA-Public Use
  Company Number: CN-ROCHE-1975301

PATIENT
  Age: 63 Year
  Sex: Female
  Weight: 50 kg

DRUGS (2)
  1. AVASTIN [Suspect]
     Active Substance: BEVACIZUMAB
     Indication: Colon cancer
     Dosage: FORM OF ADMIN: 100 MG, INJECTION
     Route: 041
     Dates: start: 20170208, end: 20220224
  2. AVASTIN [Suspect]
     Active Substance: BEVACIZUMAB
     Route: 041

REACTIONS (13)
  - Asthenia [Unknown]
  - Hypertension [Unknown]
  - Proteinuria [Unknown]
  - Cardiac discomfort [Unknown]
  - SARS-CoV-2 test positive [Unknown]
  - Immunodeficiency [Unknown]
  - General physical health deterioration [Unknown]
  - Pyrexia [Unknown]
  - Pneumonitis [Not Recovered/Not Resolved]
  - Mass excision [Unknown]
  - Adverse drug reaction [Unknown]
  - Atrial fibrillation [Unknown]
  - Arrhythmia [Unknown]

NARRATIVE: CASE EVENT DATE: 20230131
